FAERS Safety Report 12294101 (Version 3)
Quarter: 2016Q2

REPORT INFORMATION
  Report Type: Spontaneous
  Country: JP (occurrence: JP)
  Receive Date: 20160422
  Receipt Date: 20160511
  Transmission Date: 20160815
  Serious: Yes (Hospitalization, Other)
  Sender: FDA-Public Use
  Company Number: JP-PFIZER INC-2016214513

PATIENT
  Age: 87 Year
  Sex: Female

DRUGS (3)
  1. EQUA [Concomitant]
     Active Substance: VILDAGLIPTIN
     Dosage: UNK
     Dates: end: 20160413
  2. LYRICA [Suspect]
     Active Substance: PREGABALIN
     Indication: SCIATICA
     Dosage: 50 MG, 2X/DAY
     Route: 048
     Dates: start: 20150409, end: 20151207
  3. EQUA [Concomitant]
     Active Substance: VILDAGLIPTIN
     Dosage: UNK

REACTIONS (4)
  - Renal impairment [Recovering/Resolving]
  - Pemphigus [Not Recovered/Not Resolved]
  - Dehydration [Recovering/Resolving]
  - Pruritus [Unknown]

NARRATIVE: CASE EVENT DATE: 20151006
